FAERS Safety Report 5478132-9 (Version None)
Quarter: 2007Q4

REPORT INFORMATION
  Report Type: 
  Country: None (occurrence: None)
  Receive Date: 20071005
  Receipt Date: 20061106
  Transmission Date: 20080405
  Serious: Yes (Hospitalization)
  Sender: FDA-Public Use
  Company Number: US-BRISTOL-MYERS SQUIBB COMPANY-13567532

PATIENT
  Age: 75 Year
  Sex: Female
  Weight: 82 kg

DRUGS (5)
  1. AVAPRO [Suspect]
     Indication: HYPERTENSION
     Dates: start: 20050101, end: 20061106
  2. INDOCIN [Concomitant]
     Dates: start: 20030101
  3. FUROSEMIDE [Concomitant]
     Dates: end: 20061106
  4. LEVOTHYROXINE SODIUM [Concomitant]
  5. AMBIEN [Concomitant]
     Dates: end: 20061106

REACTIONS (1)
  - CARDIAC FAILURE CONGESTIVE [None]
